FAERS Safety Report 7300939-3 (Version None)
Quarter: 2011Q1

REPORT INFORMATION
  Report Type: 
  Country: None (occurrence: None)
  Receive Date: 20110218
  Receipt Date: 20110208
  Transmission Date: 20110831
  Serious: Yes (Other)
  Sender: FDA-Public Use
  Company Number: US-BAYER-2011-012759

PATIENT
  Age: 67 Year
  Sex: Female

DRUGS (1)
  1. AVELOX [Suspect]
     Indication: NASOPHARYNGITIS
     Dosage: UNK
     Route: 048
     Dates: start: 20110131, end: 20110206

REACTIONS (3)
  - RECTAL HAEMORRHAGE [None]
  - BACK PAIN [None]
  - FLATULENCE [None]
